FAERS Safety Report 6450352-6 (Version None)
Quarter: 2009Q4

REPORT INFORMATION
  Report Type: 
  Country: None (occurrence: None)
  Receive Date: 20091123
  Receipt Date: 20091118
  Transmission Date: 20100525
  Serious: Yes (Other)
  Sender: FDA-Public Use
  Company Number: CH-ROCHE-669792

PATIENT
  Age: 94 Year
  Sex: Male

DRUGS (13)
  1. ROCEPHIN [Suspect]
     Indication: DRUG USE FOR UNKNOWN INDICATION
     Route: 041
     Dates: start: 20090814, end: 20090822
  2. TORSEMIDE [Suspect]
     Indication: DRUG USE FOR UNKNOWN INDICATION
     Route: 048
     Dates: start: 20090806, end: 20090810
  3. PENICILLIN G [Suspect]
     Indication: DRUG USE FOR UNKNOWN INDICATION
     Route: 065
     Dates: start: 20090727, end: 20090804
  4. AMOXICILLIN AND CLAVULANATE POTASSIUM [Suspect]
     Indication: DRUG USE FOR UNKNOWN INDICATION
     Dosage: DRUG: CO-AMOXICILLIN
     Route: 048
     Dates: start: 20090724, end: 20090727
  5. VANCOMYCIN HCL [Suspect]
     Indication: DRUG USE FOR UNKNOWN INDICATION
     Route: 065
     Dates: start: 20090725
  6. ENOXAPARIN SODIUM [Suspect]
     Indication: DRUG USE FOR UNKNOWN INDICATION
     Route: 065
     Dates: start: 20090724, end: 20090810
  7. PERFALGAN [Suspect]
     Indication: DRUG USE FOR UNKNOWN INDICATION
     Route: 041
     Dates: start: 20090824, end: 20090827
  8. PRADIF [Suspect]
     Indication: DRUG USE FOR UNKNOWN INDICATION
     Route: 048
     Dates: start: 20090805, end: 20090810
  9. LASIX [Suspect]
     Indication: DRUG USE FOR UNKNOWN INDICATION
     Route: 048
     Dates: start: 20090727, end: 20090804
  10. TEMGESIC [Concomitant]
     Route: 048
     Dates: start: 20090724, end: 20090804
  11. FOLVITE [Concomitant]
     Route: 048
     Dates: start: 20090729, end: 20090810
  12. VITARUBIN [Concomitant]
     Route: 058
     Dates: start: 20090728, end: 20090810
  13. LAXOBERON [Concomitant]
     Route: 048
     Dates: start: 20090730, end: 20090810

REACTIONS (3)
  - HEPATOCELLULAR INJURY [None]
  - LIVER INJURY [None]
  - RASH ERYTHEMATOUS [None]
